FAERS Safety Report 6038807-X (Version None)
Quarter: 2009Q1

REPORT INFORMATION
  Report Type: 
  Country: None (occurrence: None)
  Receive Date: 20090115
  Receipt Date: 20080805
  Transmission Date: 20090719
  Serious: No
  Sender: FDA-Public Use
  Company Number: US-ABBOTT-08P-163-0468569-00

PATIENT
  Sex: Male
  Weight: 79.45 kg

DRUGS (9)
  1. ADVICOR [Suspect]
     Indication: BLOOD CHOLESTEROL
     Dosage: 1000/40 DAILY,  500/20 TWICE A DAY
     Route: 048
     Dates: start: 20060101
  2. INSULIN GLARGINE [Concomitant]
     Indication: DIABETES MELLITUS
     Route: 058
     Dates: start: 20060101
  3. PANTOPRAZOLE SODIUM [Concomitant]
     Indication: GASTRIC DISORDER
     Route: 048
     Dates: start: 20060101
  4. PREGABALIN [Concomitant]
     Indication: ARTHRITIS
     Dosage: 300-400 MG DAILY; 100MG TID TO QID
     Route: 048
     Dates: start: 20050101
  5. IRBESARTAN [Concomitant]
     Indication: HYPERTENSION
     Route: 048
     Dates: start: 20050101
  6. GLIBOMET [Concomitant]
     Indication: DIABETES MELLITUS
     Dosage: 5/1000MG; 2.5/500MG TWICE A DAY
     Route: 048
     Dates: start: 20030101
  7. ACETYLSALICYLIC ACID SRT [Concomitant]
     Indication: FLUSHING
     Route: 048
     Dates: start: 20060101
  8. ACETYLSALICYLIC ACID SRT [Concomitant]
     Indication: PROPHYLAXIS
  9. M.V.I. [Concomitant]
     Indication: DRUG USE FOR UNKNOWN INDICATION
     Route: 048

REACTIONS (3)
  - FEELING HOT [None]
  - FLUSHING [None]
  - FREQUENT BOWEL MOVEMENTS [None]
